FAERS Safety Report 7603945-4 (Version None)
Quarter: 2011Q3

REPORT INFORMATION
  Report Type: 
  Country: None (occurrence: None)
  Receive Date: 20110712
  Receipt Date: 20110628
  Transmission Date: 20111222
  Serious: Yes (Other)
  Sender: FDA-Public Use
  Company Number: CA-JNJFOC-20110700826

PATIENT
  Sex: Female
  Weight: 64 kg

DRUGS (2)
  1. REMICADE [Suspect]
     Indication: COLITIS
     Route: 042
     Dates: start: 20110101
  2. MESALAMINE [Concomitant]

REACTIONS (1)
  - NEPHROLITHIASIS [None]
